FAERS Safety Report 17306920 (Version 1)
Quarter: 2020Q1

REPORT INFORMATION
  Report Type: Spontaneous
  Country: US (occurrence: US)
  Receive Date: 20200123
  Receipt Date: 20200123
  Transmission Date: 20200409
  Serious: Yes (Death)
  Sender: FDA-Public Use
  Company Number: US-STRIDES ARCOLAB LIMITED-2020SP000583

PATIENT

DRUGS (1)
  1. VANCOMYCIN [Suspect]
     Active Substance: VANCOMYCIN
     Indication: SKIN BACTERIAL INFECTION
     Dosage: 15 MG/KG INTRAVENOUSLY DURING 2 H EVERY 12 H FOR 5-14 DAYS
     Route: 042

REACTIONS (1)
  - Death [Fatal]
